FAERS Safety Report 15253822 (Version 1)
Quarter: 2018Q4

REPORT INFORMATION
  Report Type: Spontaneous
  Country: JP (occurrence: JP)
  Receive Date: 20180808
  Receipt Date: 20180808
  Transmission Date: 20190204
  Serious: Yes (Hospitalization)
  Sender: FDA-Public Use
  Company Number: JP-TEVA-2018-JP-003994J

PATIENT
  Age: 88 Year
  Sex: Female

DRUGS (4)
  1. CEFAZOLIN SODIUM FOR INJECTION 2G ^TAIYO^ [Suspect]
     Active Substance: CEFAZOLIN SODIUM
     Dosage: 4 GRAM DAILY;
     Route: 065
     Dates: start: 20180723, end: 20180728
  2. SEISHOKU [Concomitant]
     Active Substance: SODIUM CHLORIDE
     Dosage: 80 ML DAILY;
     Route: 065
     Dates: start: 20180723, end: 20180728
  3. MOBENZOCIN FOR I.V. INJECTION 1G [Suspect]
     Active Substance: CEFTAZIDIME
     Indication: PERITONITIS
     Dosage: 4 GRAM DAILY;
     Route: 065
     Dates: start: 20180723, end: 20180728
  4. HEPARIN [Concomitant]
     Active Substance: HEPARIN SODIUM
     Dosage: 4000 IU (INTERNATIONAL UNIT) DAILY;
     Route: 065
     Dates: start: 20180723, end: 20180728

REACTIONS (3)
  - Encephalopathy [Recovering/Resolving]
  - Abnormal behaviour [Unknown]
  - Aphasia [Unknown]

NARRATIVE: CASE EVENT DATE: 20180725
